FAERS Safety Report 13911348 (Version 1)
Quarter: 2017Q3

REPORT INFORMATION
  Report Type: Spontaneous
  Country: US (occurrence: US)
  Receive Date: 20170828
  Receipt Date: 20170828
  Transmission Date: 20171127
  Serious: Yes (Death)
  Sender: FDA-Public Use
  Company Number: PHHY2017US125678

PATIENT
  Age: 31 Year
  Sex: Female

DRUGS (1)
  1. BUPROPION. [Suspect]
     Active Substance: BUPROPION
     Indication: PRODUCT USED FOR UNKNOWN INDICATION
     Dosage: 13 G, UNK
     Route: 065

REACTIONS (6)
  - Generalised tonic-clonic seizure [Fatal]
  - Circulatory collapse [Fatal]
  - Status epilepticus [Fatal]
  - Overdose [Fatal]
  - Ventricular tachycardia [Fatal]
  - Aphasia [Fatal]
